FAERS Safety Report 5448174-8 (Version None)
Quarter: 2007Q3

REPORT INFORMATION
  Report Type: 
  Country: None (occurrence: None)
  Receive Date: 20070911
  Receipt Date: 20070831
  Transmission Date: 20080115
  Serious: Yes (Other)
  Sender: FDA-Public Use
  Company Number: CH-JNJFOC-20070900243

PATIENT
  Sex: Male

DRUGS (4)
  1. REMICADE [Suspect]
     Indication: JUVENILE ARTHRITIS
     Route: 042
  2. OMEPRAZOLE [Concomitant]
  3. METHOTREXATE [Concomitant]
  4. ZOFRAN [Concomitant]

REACTIONS (1)
  - DIARRHOEA [None]
